FAERS Safety Report 7649360-9 (Version None)
Quarter: 2011Q3

REPORT INFORMATION
  Report Type: 
  Country: None (occurrence: None)
  Receive Date: 20110802
  Receipt Date: 20110725
  Transmission Date: 20111222
  Serious: Yes (Other)
  Sender: FDA-Public Use
  Company Number: BR-US-EMD SERONO, INC.-7073283

PATIENT
  Sex: Female

DRUGS (9)
  1. PANTOPRAZOLE SODIUM [Concomitant]
  2. LOSARTAN POTASSIUM [Concomitant]
  3. REBIF [Suspect]
     Indication: RELAPSING-REMITTING MULTIPLE SCLEROSIS
     Dates: start: 20020401
  4. AZORGA [Concomitant]
     Route: 047
  5. ATENOLOL [Concomitant]
  6. DIPIRONE [Concomitant]
  7. HYDROCHLOROTHIAZIDE [Concomitant]
  8. BRIMONIDINE TARTRATE [Concomitant]
  9. PRED FORT 1 PERCENT [Concomitant]

REACTIONS (6)
  - INTRAOCULAR PRESSURE INCREASED [None]
  - GLAUCOMA [None]
  - INCORRECT DOSE ADMINISTERED [None]
  - CORNEAL DISORDER [None]
  - VITREOUS DISORDER [None]
  - CORNEAL TRANSPLANT [None]
